FAERS Safety Report 9164730 (Version 1)
Quarter: 2013Q1

REPORT INFORMATION
  Report Type: Spontaneous
  Country: US (occurrence: None)
  Receive Date: 20130226
  Receipt Date: 20130226
  Transmission Date: 20140127
  Serious: No
  Sender: FDA-Public Use
  Company Number: 2013P1002008

PATIENT
  Age: 34 Year
  Sex: Female

DRUGS (2)
  1. CLINDAMYCIN [Suspect]
     Indication: PROPHYLAXIS
     Route: 048
  2. CLINDAMYCIN [Suspect]
     Indication: SKIN TEST
     Route: 048

REACTIONS (6)
  - Erythema [None]
  - Rash maculo-papular [None]
  - Purpura [None]
  - Lymphadenopathy [None]
  - Drug reaction with eosinophilia and systemic symptoms [None]
  - Drug reaction with eosinophilia and systemic symptoms [None]
